FAERS Safety Report 8087668-6 (Version None)
Quarter: 2012Q1

REPORT INFORMATION
  Report Type: 
  Country: None (occurrence: None)
  Receive Date: 20120128
  Receipt Date: 20110419
  Transmission Date: 20120608
  Serious: No
  Sender: FDA-Public Use
  Company Number: US-ABBOTT-11P-163-0720940-00

PATIENT
  Sex: Male
  Weight: 108.96 kg

DRUGS (2)
  1. UNKNOWN MEDICATION [Concomitant]
     Indication: GASTROOESOPHAGEAL REFLUX DISEASE
  2. HUMIRA [Suspect]
     Indication: PSORIASIS
     Dates: start: 20100401, end: 20101001

REACTIONS (4)
  - PAIN [None]
  - GAIT DISTURBANCE [None]
  - PRURITUS [None]
  - PSORIASIS [None]
